FAERS Safety Report 11083880 (Version 2)
Quarter: 2015Q3

REPORT INFORMATION
  Report Type: Spontaneous
  Country: US (occurrence: US)
  Receive Date: 20150501
  Receipt Date: 20150723
  Transmission Date: 20151125
  Serious: Yes (Hospitalization, Disabling)
  Sender: FDA-Public Use
  Company Number: US-ENDO PHARMACEUTICALS INC.-2015-000659

PATIENT
  Age: 52 Year
  Sex: Male
  Weight: 113.5 kg

DRUGS (2)
  1. BIO-IDENTICAL TESTOSTERONE [Suspect]
     Active Substance: TESTOSTERONE
     Indication: ANDROGEN REPLACEMENT THERAPY
     Route: 065
     Dates: start: 20100123
  2. TESTIM [Suspect]
     Active Substance: TESTOSTERONE
     Indication: ANDROGEN REPLACEMENT THERAPY
     Route: 062
     Dates: start: 20091230, end: 2011

REACTIONS (9)
  - Subarachnoid haemorrhage [Not Recovered/Not Resolved]
  - Dizziness [None]
  - Cerebrovascular accident [Not Recovered/Not Resolved]
  - Photosensitivity reaction [None]
  - Balance disorder [None]
  - Confusional state [None]
  - Neck pain [None]
  - Fatigue [None]
  - Chest pain [Unknown]

NARRATIVE: CASE EVENT DATE: 20100228
